FAERS Safety Report 8921827 (Version 1)
Quarter: 2012Q4

REPORT INFORMATION
  Report Type: 
  Country: US (occurrence: US)
  Receive Date: 20121122
  Receipt Date: 20121122
  Transmission Date: 20130627
  Serious: No
  Sender: FDA-Public Use
  Company Number: US-009507513-1211USA008444

PATIENT

DRUGS (3)
  1. PEGINTRON [Suspect]
     Dosage: UNK
  2. RIBAVIRIN [Suspect]
     Dosage: UNK
  3. VICTRELIS [Suspect]
     Dosage: UNK

REACTIONS (5)
  - Delirium [Not Recovered/Not Resolved]
  - Memory impairment [Not Recovered/Not Resolved]
  - Confusional state [Unknown]
  - Balance disorder [Unknown]
  - Disorientation [Unknown]
